FAERS Safety Report 6272881-0 (Version None)
Quarter: 2009Q3

REPORT INFORMATION
  Report Type: 
  Country: None (occurrence: None)
  Receive Date: 20090717
  Receipt Date: 20090713
  Transmission Date: 20100115
  Serious: Yes (Life-Threatening, Hospitalization)
  Sender: FDA-Public Use
  Company Number: JP-GILEAD-2009-0023139

PATIENT
  Sex: Male

DRUGS (15)
  1. TRUVADA [Suspect]
     Indication: HIV INFECTION
     Dates: start: 20080828
  2. REYATAZ [Suspect]
     Indication: HIV INFECTION
     Dates: start: 20080828
  3. NORVIR [Suspect]
     Indication: HIV INFECTION
     Dates: start: 20080828
  4. MYSLEE [Suspect]
     Dates: start: 20081006, end: 20081006
  5. SILECE [Suspect]
     Dates: start: 20081006, end: 20081006
  6. ALLELOCK [Concomitant]
     Dates: start: 20080716
  7. PAXIL [Concomitant]
     Dates: start: 20080917, end: 20081006
  8. PAXIL [Concomitant]
     Dates: start: 20080903, end: 20080916
  9. PAXIL [Concomitant]
     Dates: start: 20080820, end: 20080903
  10. MYSLEE [Concomitant]
     Dates: start: 20080820
  11. SILECE [Concomitant]
     Dates: start: 20080820
  12. TOLEDOMIN [Concomitant]
     Dates: start: 20081203, end: 20090121
  13. TOLEDOMIN [Concomitant]
     Dates: start: 20081008, end: 20081202
  14. TOLEDOMIN [Concomitant]
     Dates: start: 20080917, end: 20081007
  15. BAKTAR [Concomitant]
     Dates: start: 20080716, end: 20090304

REACTIONS (2)
  - DRUG TOXICITY [None]
  - OVERDOSE [None]
